FAERS Safety Report 19666136 (Version 1)
Quarter: 2021Q3

REPORT INFORMATION
  Report Type: Other
  Country: DE (occurrence: DE)
  Receive Date: 20210805
  Receipt Date: 20210805
  Transmission Date: 20211014
  Serious: Yes (Hospitalization)
  Sender: FDA-Public Use
  Company Number: DE-CELLTRION INC.-2021DE010090

PATIENT

DRUGS (4)
  1. EISEN [Concomitant]
     Indication: IRON DEFICIENCY ANAEMIA
     Dosage: DAILY DOSE: 80 MG MILLGRAM(S) EVERY DAYS
     Route: 048
     Dates: start: 201905
  2. INFLIXIMAB (UNKNOWN) [Suspect]
     Active Substance: INFLIXIMAB
     Indication: COLITIS ULCERATIVE
     Dosage: 600 MG
     Route: 042
     Dates: start: 202001
  3. COLECALCIFEROL [Concomitant]
     Active Substance: CHOLECALCIFEROL
     Indication: COLITIS ULCERATIVE
     Dosage: DAILY DOSE: 2000 IU INTERNATIONAL UNIT(S) EVERY DAYS
     Route: 048
     Dates: start: 201905
  4. AZATHIOPRINE. [Suspect]
     Active Substance: AZATHIOPRINE
     Indication: COLITIS ULCERATIVE
     Dosage: DAILY DOSE: 50 MG MILLGRAM(S) EVERY DAYS
     Route: 048
     Dates: start: 201909, end: 20200522

REACTIONS (2)
  - Pancreatitis [Recovered/Resolved]
  - Overdose [Unknown]

NARRATIVE: CASE EVENT DATE: 20200514
